FAERS Safety Report 20746975 (Version 1)
Quarter: 2022Q2

REPORT INFORMATION
  Report Type: Spontaneous
  Country: US (occurrence: US)
  Receive Date: 20220425
  Receipt Date: 20220425
  Transmission Date: 20220721
  Serious: Yes (Hospitalization)
  Sender: FDA-Public Use
  Company Number: US-TEVA-2022-US-2029265

PATIENT
  Age: 59 Year
  Sex: Female

DRUGS (1)
  1. METOPROLOL SUCCINATE [Suspect]
     Active Substance: METOPROLOL SUCCINATE
     Indication: Supraventricular tachycardia
     Dosage: 25 MILLIGRAM DAILY; AT NIGHT
     Route: 065

REACTIONS (4)
  - Illness [Recovered/Resolved]
  - COVID-19 [Unknown]
  - General physical health deterioration [Unknown]
  - Product use in unapproved indication [Unknown]

NARRATIVE: CASE EVENT DATE: 20180101
